FAERS Safety Report 25681297 (Version 1)
Quarter: 2025Q3

REPORT INFORMATION
  Report Type: Spontaneous
  Country: US (occurrence: None)
  Receive Date: 20250813
  Receipt Date: 20250813
  Transmission Date: 20251020
  Serious: Yes (Hospitalization)
  Sender: FDA-CTU
  Company Number: None

PATIENT
  Age: 72 Year
  Sex: Female

DRUGS (7)
  1. TRAMADOL [Suspect]
     Active Substance: TRAMADOL
     Indication: Pain
     Dates: start: 20250715
  2. TRAMADOL [Suspect]
     Active Substance: TRAMADOL
     Indication: Anxiety
  3. BUSPIRONE [Suspect]
     Active Substance: BUSPIRONE HYDROCHLORIDE
     Dates: start: 20140129
  4. EZETIMIBE [Suspect]
     Active Substance: EZETIMIBE
  5. LISINOPRIL [Suspect]
     Active Substance: LISINOPRIL
  6. ROSUVASTATIN [Suspect]
     Active Substance: ROSUVASTATIN
  7. AMITRIPTYLINE [Concomitant]
     Active Substance: AMITRIPTYLINE

REACTIONS (11)
  - Fall [None]
  - Compression fracture [None]
  - Aortic stenosis [None]
  - Hypokalaemia [None]
  - Hypomagnesaemia [None]
  - Contraindicated product administered [None]
  - Agitation [None]
  - Confusional state [None]
  - Frontotemporal dementia [None]
  - Korsakoff^s syndrome [None]
  - Seizure [None]

NARRATIVE: CASE EVENT DATE: 20250716
